FAERS Safety Report 7250487-4 (Version None)
Quarter: 2011Q1

REPORT INFORMATION
  Report Type: 
  Country: None (occurrence: None)
  Receive Date: 20110128
  Receipt Date: 20110118
  Transmission Date: 20110831
  Serious: Yes (Other)
  Sender: FDA-Public Use
  Company Number: US-ACTELION-A-US2010-39564

PATIENT

DRUGS (9)
  1. BENZOLATE [Concomitant]
  2. CENTRUM SILVER [Concomitant]
  3. BOSENTAN TABLET UNKNOWN US MG [Suspect]
     Indication: PULMONARY ARTERIAL HYPERTENSION
     Dosage: 62.5 MG, BID
     Route: 048
     Dates: start: 20100809
  4. ASA [Concomitant]
  5. FUROSEMIDE [Concomitant]
  6. POTASSIUM CHLORIDE [Concomitant]
  7. AMLODIPINE [Concomitant]
  8. ACTOS [Concomitant]
  9. GLYBURIDE [Concomitant]

REACTIONS (4)
  - FATIGUE [None]
  - CHEST DISCOMFORT [None]
  - HYPERHIDROSIS [None]
  - RESPIRATORY TRACT CONGESTION [None]
